FAERS Safety Report 5331375-7 (Version None)
Quarter: 2007Q2

REPORT INFORMATION
  Report Type: 
  Country: None (occurrence: None)
  Receive Date: 20070301
  Receipt Date: 20060530
  Transmission Date: 20071010
  Serious: Yes (Other)
  Sender: FDA-Public Use
  Company Number: 2679

PATIENT
  Age: 28 Year
  Sex: Female

DRUGS (3)
  1. ISOTRETINOIN [Suspect]
     Indication: ACNE
     Dosage: 50MG, QD, PO
     Route: 048
     Dates: start: 20060404, end: 20060424
  2. LAMOTRIGINE [Concomitant]
  3. DEPO-PROVERA [Concomitant]

REACTIONS (1)
  - EPILEPSY [None]
